FAERS Safety Report 11287074 (Version 1)
Quarter: 2015Q3

REPORT INFORMATION
  Report Type: Spontaneous
  Country: US (occurrence: None)
  Receive Date: 20150720
  Receipt Date: 20150720
  Transmission Date: 20151125
  Serious: No
  Sender: FDA-Public Use
  Company Number: None

PATIENT
  Age: 50 Year
  Sex: Female
  Weight: 124.74 kg

DRUGS (9)
  1. PROVENTIL [Concomitant]
     Active Substance: ALBUTEROL
  2. EYEBRIGHT [Concomitant]
  3. SUPPLEMENTS FOR THYROID AND LIVER [Concomitant]
  4. LIQUID IRON WITH B COMPLEX [Concomitant]
  5. PROAIR HFA [Concomitant]
     Active Substance: ALBUTEROL SULFATE
  6. PROAIR HFA [Suspect]
     Active Substance: ALBUTEROL SULFATE
     Indication: ASTHMA
     Dosage: 2 DOSES ?AS NEEDED ?INHALATION
     Route: 055
  7. ADVAIR HFA [Concomitant]
     Active Substance: FLUTICASONE PROPIONATE\SALMETEROL XINAFOATE
  8. ZYRTEC D ALLERGY AND CONGESTION [Concomitant]
     Active Substance: CETIRIZINE HYDROCHLORIDE\PSEUDOEPHEDRINE HYDROCHLORIDE
  9. FEVERFEW [Concomitant]
     Active Substance: FEVERFEW

REACTIONS (3)
  - Reaction to drug excipients [None]
  - Drug effect decreased [None]
  - Sputum increased [None]

NARRATIVE: CASE EVENT DATE: 20150717
